FAERS Safety Report 9467876 (Version 3)
Quarter: 2013Q4

REPORT INFORMATION
  Report Type: Report from Study
  Country: CA (occurrence: CA)
  Receive Date: 20130821
  Receipt Date: 20131203
  Transmission Date: 20140711
  Serious: Yes (Hospitalization, Other)
  Sender: FDA-Public Use
  Company Number: CA-JNJFOC-20130807684

PATIENT
  Age: 26 Year
  Sex: Female
  Weight: 45.8 kg

DRUGS (10)
  1. REMICADE [Suspect]
     Indication: COLITIS
     Route: 042
     Dates: start: 201211
  2. REMICADE [Suspect]
     Indication: COLITIS
     Dosage: 11TH INFUSION
     Route: 042
     Dates: start: 20130930
  3. REMICADE [Suspect]
     Indication: COLITIS
     Dosage: 10TH INFUSION
     Route: 042
     Dates: start: 20130812
  4. REMICADE [Suspect]
     Indication: COLITIS
     Route: 042
     Dates: start: 20110719
  5. REMICADE [Suspect]
     Indication: CROHN^S DISEASE
     Route: 042
     Dates: start: 20110719
  6. REMICADE [Suspect]
     Indication: CROHN^S DISEASE
     Dosage: 10TH INFUSION
     Route: 042
     Dates: start: 20130812
  7. REMICADE [Suspect]
     Indication: CROHN^S DISEASE
     Dosage: 11TH INFUSION
     Route: 042
     Dates: start: 20130930
  8. REMICADE [Suspect]
     Indication: CROHN^S DISEASE
     Route: 042
     Dates: start: 201211
  9. SOLUCORTEF [Concomitant]
     Indication: PREMEDICATION
     Route: 042
  10. TYLENOL [Concomitant]
     Indication: PREMEDICATION
     Route: 065

REACTIONS (10)
  - Intestinal resection [Recovered/Resolved]
  - Colostomy [Recovered/Resolved]
  - Hypotension [Recovered/Resolved]
  - Ovarian mass [Not Recovered/Not Resolved]
  - Benign ovarian tumour [Recovered/Resolved]
  - Fluid intake reduced [Recovered/Resolved]
  - Pain [Recovered/Resolved]
  - Pruritus [Recovered/Resolved]
  - Infusion related reaction [Recovered/Resolved]
  - Adverse event [Unknown]
